FAERS Safety Report 7631753-7 (Version None)
Quarter: 2011Q3

REPORT INFORMATION
  Report Type: 
  Country: None (occurrence: None)
  Receive Date: 20110725
  Receipt Date: 20110228
  Transmission Date: 20111222
  Serious: Yes (Death)
  Sender: FDA-Public Use
  Company Number: US-BRISTOL-MYERS SQUIBB COMPANY-15590938

PATIENT

DRUGS (3)
  1. ASPIRIN [Suspect]
     Route: 064
  2. COUMADIN [Suspect]
     Route: 064
  3. LOVENOX [Suspect]
     Route: 064

REACTIONS (1)
  - INTRA-UTERINE DEATH [None]
